FAERS Safety Report 9912044 (Version 1)
Quarter: 2014Q1

REPORT INFORMATION
  Report Type: Spontaneous
  Country: US (occurrence: US)
  Receive Date: 20140219
  Receipt Date: 20140219
  Transmission Date: 20141002
  Serious: Yes (Hospitalization)
  Sender: FDA-Public Use
  Company Number: US-BAXTER-2014BAX007500

PATIENT
  Age: 67 Year
  Sex: Female

DRUGS (2)
  1. VANCOMYCIN INJECTION, USP [Suspect]
     Indication: INFECTION
     Route: 042
  2. CEFTRIAXONE INJECTION, USP (IN DEXTROSE) [Suspect]
     Indication: INFECTION
     Route: 042

REACTIONS (1)
  - Drug reaction with eosinophilia and systemic symptoms [Recovered/Resolved]
